FAERS Safety Report 4379218-2 (Version None)
Quarter: 2004Q2

REPORT INFORMATION
  Report Type: 
  Country: None (occurrence: None)
  Receive Date: 20040614
  Receipt Date: 20040506
  Transmission Date: 20050107
  Serious: Yes (Death)
  Sender: FDA-Public Use
  Company Number: 2004028507

PATIENT
  Age: 32 Year
  Sex: Male

DRUGS (2)
  1. NEURONTIN [Suspect]
     Indication: RADICULAR PAIN
     Dosage: 1800 MG (3 IN 1 D)
  2. METHADONE (METHADONE) [Suspect]
     Indication: ILL-DEFINED DISORDER
     Dosage: 40 MG (10 MG, 4 IN 1 D)

REACTIONS (1)
  - DEATH [None]
